FAERS Safety Report 19955222 (Version 1)
Quarter: 2021Q4

REPORT INFORMATION
  Report Type: Other
  Country: JP (occurrence: JP)
  Receive Date: 20211014
  Receipt Date: 20211014
  Transmission Date: 20220304
  Serious: Yes (Other)
  Sender: FDA-Public Use
  Company Number: JP-ROCHE-2928519

PATIENT

DRUGS (2)
  1. ATEZOLIZUMAB [Suspect]
     Active Substance: ATEZOLIZUMAB
     Indication: Hepatocellular carcinoma
     Route: 041
  2. BEVACIZUMAB [Suspect]
     Active Substance: BEVACIZUMAB
     Indication: Hepatocellular carcinoma
     Route: 042

REACTIONS (19)
  - Meningitis [Unknown]
  - Ascites [Unknown]
  - Adrenal insufficiency [Unknown]
  - Gastrointestinal haemorrhage [Unknown]
  - Interstitial lung disease [Unknown]
  - Renal impairment [Unknown]
  - Fatigue [Unknown]
  - Decreased appetite [Unknown]
  - Pyrexia [Unknown]
  - Transaminases increased [Unknown]
  - Nausea [Unknown]
  - Epistaxis [Unknown]
  - Haemorrhage subcutaneous [Unknown]
  - Rash [Unknown]
  - Hypertension [Unknown]
  - Diarrhoea [Unknown]
  - Oedema [Unknown]
  - Blood bilirubin increased [Unknown]
  - Proteinuria [Unknown]
